FAERS Safety Report 8102602-8 (Version None)
Quarter: 2012Q1

REPORT INFORMATION
  Report Type: 
  Country: None (occurrence: None)
  Receive Date: 20111222
  Receipt Date: 20110915
  Transmission Date: 20120608
  Serious: Yes (Hospitalization)
  Sender: FDA-Public Use
  Company Number: UTC-009809

PATIENT
  Age: 69 Year
  Sex: Male
  Weight: 120.5 kg

DRUGS (4)
  1. TYVASO [Suspect]
     Indication: PULMONARY ARTERIAL HYPERTENSION
     Dosage: (54 MCG, 4 SESSIONS), INHALATION
     Route: 055
     Dates: start: 20100802
  2. DIURETICS [Concomitant]
  3. ADCIRCA [Suspect]
  4. COUMADIN [Suspect]

REACTIONS (4)
  - FLUID OVERLOAD [None]
  - LOCALISED INFECTION [None]
  - ARTERIOVENOUS FISTULA OPERATION [None]
  - DRUG DOSE OMISSION [None]
